FAERS Safety Report 19460992 (Version 1)
Quarter: 2021Q2

REPORT INFORMATION
  Report Type: Spontaneous
  Country: US (occurrence: US)
  Receive Date: 20210625
  Receipt Date: 20210625
  Transmission Date: 20210717
  Serious: No
  Sender: FDA-Public Use
  Company Number: US-GILEAD-2021-0537644

PATIENT
  Sex: Female

DRUGS (4)
  1. MYLANTA GAS [Concomitant]
  2. PROTONIX [OMEPRAZOLE] [Concomitant]
     Active Substance: OMEPRAZOLE
  3. EPCLUSA [Suspect]
     Active Substance: SOFOSBUVIR\VELPATASVIR
     Indication: CHRONIC HEPATITIS C
     Dosage: 1 DOSAGE FORM, QD
     Route: 048
     Dates: start: 202105
  4. CARAFATE [Concomitant]
     Active Substance: SUCRALFATE

REACTIONS (2)
  - Headache [Unknown]
  - Dizziness [Recovered/Resolved]
